FAERS Safety Report 4766903-3 (Version None)
Quarter: 2005Q3

REPORT INFORMATION
  Report Type: 
  Country: None (occurrence: None)
  Receive Date: 20050909
  Receipt Date: 20040901
  Transmission Date: 20060218
  Serious: Yes (Hospitalization)
  Sender: FDA-Public Use
  Company Number: 2004061397

PATIENT
  Age: 44 Year
  Sex: Female

DRUGS (2)
  1. LOPID [Suspect]
     Indication: ILL-DEFINED DISORDER
  2. CLOZAPINE [Suspect]
     Indication: SCHIZOPHRENIA, PARANOID TYPE
     Dosage: 150-200 MG (1 IN 1 D),
     Dates: start: 20000701, end: 20040601

REACTIONS (1)
  - WHITE BLOOD CELL COUNT DECREASED [None]
